FAERS Safety Report 12131417 (Version 1)
Quarter: 2016Q1

REPORT INFORMATION
  Report Type: Spontaneous
  Country: US (occurrence: None)
  Receive Date: 20160229
  Receipt Date: 20160229
  Transmission Date: 20160526
  Serious: Yes (Hospitalization, Other)
  Sender: FDA-Public Use
  Company Number: None

PATIENT
  Age: 51 Year
  Sex: Female
  Weight: 122.47 kg

DRUGS (5)
  1. ESTRADOYL [Concomitant]
  2. CONTRAVE [Suspect]
     Active Substance: BUPROPION HYDROCHLORIDE\NALTREXONE HYDROCHLORIDE
     Indication: WEIGHT DECREASED
     Dosage: 1 PILL TWICE DAILY TAKEN BY MOUTH
     Route: 048
     Dates: start: 20160126, end: 20160201
  3. VICTOZA [Concomitant]
     Active Substance: LIRAGLUTIDE
  4. LEVOTHYROXIN [Concomitant]
     Active Substance: LEVOTHYROXINE
  5. PREDISONE [Concomitant]
     Active Substance: PREDNISONE

REACTIONS (6)
  - Sarcoidosis [None]
  - Drug hypersensitivity [None]
  - Pruritus generalised [None]
  - Lymphadenopathy [None]
  - Condition aggravated [None]
  - Anger [None]

NARRATIVE: CASE EVENT DATE: 20160202
